FAERS Safety Report 9270967 (Version 1)
Quarter: 2013Q2

REPORT INFORMATION
  Report Type: Spontaneous
  Country: US (occurrence: US)
  Receive Date: 20130506
  Receipt Date: 20130506
  Transmission Date: 20140414
  Serious: No
  Sender: FDA-Public Use
  Company Number: US-009507513-1304USA015790

PATIENT
  Sex: Female

DRUGS (14)
  1. RIBAVIRIN [Suspect]
     Indication: HEPATITIS C
     Dosage: 1.2 G, QD
     Route: 048
     Dates: start: 20120912
  2. RIBAVIRIN [Suspect]
     Dosage: 400 MG, QD
     Route: 048
  3. RIBAVIRIN [Suspect]
     Dosage: 800 MG, QD
     Route: 048
  4. BOCEPREVIR [Suspect]
     Indication: HEPATITIS C
     Dosage: UNK
     Route: 048
     Dates: start: 20121017
  5. PEGASYS [Suspect]
     Indication: HEPATITIS C
     Dosage: 180 MICROGRAM, QW
     Dates: start: 20120912
  6. PEGASYS [Suspect]
     Dosage: 135 MICROGRAM, QW
  7. LYRICA [Concomitant]
  8. IBUPROFEN [Concomitant]
  9. METFORMIN HYDROCHLORIDE [Concomitant]
  10. GLYBURIDE [Concomitant]
  11. JANUVIA [Concomitant]
  12. CYMBALTA [Concomitant]
  13. QUETIAPINE FUMARATE [Concomitant]
  14. AMBIEN [Concomitant]

REACTIONS (6)
  - Skin fissures [Unknown]
  - White blood cell count decreased [Unknown]
  - Influenza like illness [Unknown]
  - Dry skin [Unknown]
  - Fatigue [Unknown]
  - Anaemia [Unknown]
